FAERS Safety Report 10766302 (Version 1)
Quarter: 2015Q1

REPORT INFORMATION
  Report Type: Spontaneous
  Country: NO (occurrence: NO)
  Receive Date: 20150205
  Receipt Date: 20150205
  Transmission Date: 20150721
  Serious: Yes (Disabling, Other)
  Sender: FDA-Public Use
  Company Number: PHHY2015NO009200

PATIENT
  Age: 61 Year
  Sex: Female

DRUGS (10)
  1. PROGYNOVA [Concomitant]
     Active Substance: ESTRADIOL VALERATE
     Indication: HYSTERECTOMY
     Dosage: 2 MG, QD (2 MG, 1X/DAY)
     Route: 065
     Dates: start: 199503
  2. AMLODIPINE BESYLATE. [Suspect]
     Active Substance: AMLODIPINE BESYLATE
     Indication: HYPERTENSION
     Dosage: 10 MG, QD
     Route: 048
     Dates: start: 20140812, end: 20140831
  3. AMLODIPINE BESYLATE. [Suspect]
     Active Substance: AMLODIPINE BESYLATE
     Dosage: 5 MG, QD
     Route: 048
     Dates: start: 20140901, end: 20141203
  4. AMLODIPINE BESYLATE. [Suspect]
     Active Substance: AMLODIPINE BESYLATE
     Dosage: 5 MG, QD
     Route: 048
     Dates: start: 20150108
  5. ZINK PLUS VITAMIN C [Concomitant]
     Indication: PRODUCT USED FOR UNKNOWN INDICATION
     Dosage: 1 DF, QD (1 TABLET, 1X/DAY)
     Route: 065
  6. SPIRIX [Concomitant]
     Active Substance: SPIRONOLACTONE
     Indication: HYPERTENSION
     Dosage: 25 MG, QD (25 MG, 1X/DAY. WITHDRAWN FROM 12AUG2014-31AUG2014 DUE TO EXAMINATION OF ALDOSTERONE ON 01
     Route: 065
     Dates: start: 201401, end: 20140812
  7. NORVASC [Suspect]
     Active Substance: AMLODIPINE BESYLATE
     Indication: HYPERTENSION
     Dosage: 5 MG, 1X/DAY
     Route: 048
     Dates: start: 199602, end: 20140811
  8. OMEGA-3 ACIDS [Concomitant]
     Active Substance: OMEGA-3 FATTY ACIDS
     Indication: PRODUCT USED FOR UNKNOWN INDICATION
     Dosage: 1 DF, QD (1 CAPSULE, 1X/DAY)
     Route: 065
  9. KALEORID [Concomitant]
     Active Substance: POTASSIUM CHLORIDE
     Indication: HYPOKALAEMIA
     Dosage: 1500 MG, QD
     Route: 065
     Dates: start: 201312
  10. SPIRIX [Concomitant]
     Active Substance: SPIRONOLACTONE
     Indication: HYPERALDOSTERONISM
     Dosage: 25 MG, QD
     Dates: start: 20140831

REACTIONS (4)
  - Aspartate aminotransferase increased [Recovering/Resolving]
  - Biliary cirrhosis primary [Unknown]
  - Autoimmune hepatitis [Unknown]
  - Alanine aminotransferase increased [Recovering/Resolving]

NARRATIVE: CASE EVENT DATE: 20140901
